FAERS Safety Report 6290725-8 (Version None)
Quarter: 2009Q3

REPORT INFORMATION
  Report Type: 
  Country: None (occurrence: None)
  Receive Date: 20090730
  Receipt Date: 20070611
  Transmission Date: 20100115
  Serious: Yes (Other)
  Sender: FDA-Public Use
  Company Number: US-ASTRAZENECA-2006UW26486

PATIENT
  Age: 17918 Day
  Sex: Male
  Weight: 71.7 kg

DRUGS (11)
  1. SEROQUEL [Suspect]
     Indication: SCHIZOPHRENIA
     Dosage: 25-100 MG AT NIGHT
     Route: 048
     Dates: start: 20040406
  2. SEROQUEL [Suspect]
     Indication: ANGER
     Dosage: 25-100 MG AT NIGHT
     Route: 048
     Dates: start: 20040406
  3. SEROQUEL [Suspect]
     Indication: SLEEP DISORDER
     Dosage: 25-100 MG AT NIGHT
     Route: 048
     Dates: start: 20040406
  4. SEROQUEL [Suspect]
     Indication: PSYCHOTIC DISORDER
     Dosage: 25-100 MG AT NIGHT
     Route: 048
     Dates: start: 20040406
  5. SEROQUEL [Suspect]
     Route: 048
  6. SEROQUEL [Suspect]
     Route: 048
  7. SEROQUEL [Suspect]
     Route: 048
  8. SEROQUEL [Suspect]
     Route: 048
  9. NOVOLIN INSULIN 70/30 HUMAN [Concomitant]
     Dosage: 20 UNITS EVERY MORNING AND 10 UNITS EVERY EVENING
     Route: 058
     Dates: start: 20030922
  10. VIAGRA [Concomitant]
     Dosage: 50-100 MG
     Route: 048
     Dates: start: 20011010
  11. PHENYTOIN SODIUM [Concomitant]
     Route: 048
     Dates: start: 20040419

REACTIONS (3)
  - DIABETES MELLITUS [None]
  - DIABETIC NEUROPATHY [None]
  - TYPE 1 DIABETES MELLITUS [None]
